FAERS Safety Report 18252358 (Version 1)
Quarter: 2020Q3

REPORT INFORMATION
  Report Type: Spontaneous
  Country: US (occurrence: US)
  Receive Date: 20200910
  Receipt Date: 20200910
  Transmission Date: 20201103
  Serious: No
  Sender: FDA-Public Use
  Company Number: US-FARMAPROD-202006-0869

PATIENT
  Sex: Female

DRUGS (4)
  1. LYRICA [Concomitant]
     Active Substance: PREGABALIN
  2. ARTIFICIAL TEARS [Concomitant]
     Active Substance: GLYCERIN\HYPROMELLOSES\POLYETHYLENE GLYCOL 400
     Dosage: 0.1?0.3%
  3. OXERVATE [Suspect]
     Active Substance: CENEGERMIN-BKBJ
     Indication: NEUROTROPHIC KERATOPATHY
     Route: 047
     Dates: start: 20200617
  4. CELEBREX [Concomitant]
     Active Substance: CELECOXIB

REACTIONS (5)
  - Foreign body sensation in eyes [Unknown]
  - Ocular discomfort [Unknown]
  - Eye inflammation [Unknown]
  - Lacrimation increased [Unknown]
  - Eye irritation [Unknown]
